FAERS Safety Report 24966808 (Version 3)
Quarter: 2025Q3

REPORT INFORMATION
  Report Type: Spontaneous
  Country: EU (occurrence: EU)
  Receive Date: 20250213
  Receipt Date: 20250729
  Transmission Date: 20251021
  Serious: Yes (Hospitalization, Other)
  Sender: PFIZER
  Company Number: EU-Accord-467155

PATIENT
  Age: 37 Year
  Sex: Male
  Weight: 71 kg

DRUGS (23)
  1. IRINOTECAN HYDROCHLORIDE [Suspect]
     Active Substance: IRINOTECAN HYDROCHLORIDE
     Indication: Ewing^s sarcoma
     Dosage: 250 MG/M2, EVERY 3 WEEKS (50 MG/M2 DAILY FOR FIVE DAYS)
     Dates: start: 20240708, end: 20240708
  2. IRINOTECAN HYDROCHLORIDE [Suspect]
     Active Substance: IRINOTECAN HYDROCHLORIDE
     Dosage: 37.5 MG/M2, EVERY 3 WEEKS
     Dates: start: 20250103, end: 20250103
  3. TEMOZOLOMIDE [Suspect]
     Active Substance: TEMOZOLOMIDE
     Indication: Ewing^s sarcoma
     Dosage: 500 MG/M2, EVERY 3 WEEKS (100 MG/M2 DAILY FOR FIVE DAYS)
     Route: 048
     Dates: start: 20240708, end: 20240708
  4. TEMOZOLOMIDE [Suspect]
     Active Substance: TEMOZOLOMIDE
     Dosage: 100 MG/M2, EVERY 3 WEEKS
     Dates: start: 20250103, end: 20250103
  5. LEVOTHYROXINE [Concomitant]
     Active Substance: LEVOTHYROXINE
     Dates: start: 202304
  6. LEVOTHYROXINE SODIUM\LIOTHYRONINE SODIUM [Concomitant]
     Active Substance: LEVOTHYROXINE SODIUM\LIOTHYRONINE SODIUM
     Dates: start: 20230428
  7. VALACYCLOVIR HYDROCHLORIDE [Concomitant]
     Active Substance: VALACYCLOVIR HYDROCHLORIDE
     Dates: start: 202310
  8. BACTRIM [Concomitant]
     Active Substance: SULFAMETHOXAZOLE\TRIMETHOPRIM
     Dates: start: 202310
  9. CEFIXIM [CEFIXIME] [Concomitant]
     Dates: start: 20240710
  10. DESLORATADINE [Concomitant]
     Active Substance: DESLORATADINE
     Dates: start: 1994
  11. ONCTOSE [Concomitant]
     Dates: start: 20240710
  12. BETAMETHASONE DIPROPIONATE [Concomitant]
     Active Substance: BETAMETHASONE DIPROPIONATE
     Dates: start: 20240710
  13. SMECTA [Concomitant]
     Active Substance: MONTMORILLONITE
     Dates: start: 20240710
  14. RACECADOTRIL [Concomitant]
     Active Substance: RACECADOTRIL
     Dates: start: 20240710
  15. LOPERAMIDE [Concomitant]
     Active Substance: LOPERAMIDE
     Dates: start: 20240710
  16. SODIUM BICARBONATE [Concomitant]
     Active Substance: SODIUM BICARBONATE
     Dates: start: 20020710
  17. PHLOROGLUCINOL [Concomitant]
     Active Substance: PHLOROGLUCINOL
     Dates: start: 20240719
  18. TRIMEBUTINE [Concomitant]
     Active Substance: TRIMEBUTINE
     Dates: start: 20240719
  19. FILGRASTIM [Concomitant]
     Active Substance: FILGRASTIM
     Dates: start: 20240729
  20. ONDANSETRON [Concomitant]
     Active Substance: ONDANSETRON
     Dates: start: 20240708
  21. ATROPINE [Concomitant]
     Active Substance: ATROPINE
     Dates: start: 20240729
  22. METHYLPREDNISOLONE [Concomitant]
     Active Substance: METHYLPREDNISOLONE
     Dates: start: 20240709
  23. TADALAFIL [Concomitant]
     Active Substance: TADALAFIL
     Dates: start: 20241106

REACTIONS (2)
  - Enteritis [Recovered/Resolved]
  - Off label use [Unknown]

NARRATIVE: CASE EVENT DATE: 20240708
